FAERS Safety Report 5394761-5 (Version None)
Quarter: 2007Q3

REPORT INFORMATION
  Report Type: 
  Country: None (occurrence: None)
  Receive Date: 20070720
  Receipt Date: 20070705
  Transmission Date: 20080115
  Serious: Yes (Other)
  Sender: FDA-Public Use
  Company Number: SPI200700390

PATIENT
  Age: 33 Year
  Sex: Female
  Weight: 70.7 kg

DRUGS (11)
  1. AMITIZA (LUBIPROSTON) CAPSULE, 24MCG [Suspect]
     Indication: CONSTIPATION
     Dosage: 24 MCG, BID, ORAL
     Route: 048
     Dates: start: 20070423, end: 20070601
  2. MAGNESIUM (MAGNESIUM) [Concomitant]
  3. POTASSIUM (POTASSIUM) [Concomitant]
  4. CALCITRIOL [Concomitant]
  5. NIASPAN [Concomitant]
  6. SYNTHROID [Concomitant]
  7. SINGULAIR  (MONTELUKAST) TABLET [Concomitant]
  8. FEXOFENADINE HCL [Concomitant]
  9. NASACORT AQ (TRIAMCINOLONE ACETONIDE) [Concomitant]
  10. SERTRALINE [Concomitant]
  11. BENEFIBER (CYAMPOSIS TETRAGONOLOBA GUM) [Concomitant]

REACTIONS (6)
  - CONSTIPATION [None]
  - DIARRHOEA [None]
  - DRUG TOLERANCE [None]
  - HYPERTENSION [None]
  - RENAL FAILURE [None]
  - STOMACH DISCOMFORT [None]
